FAERS Safety Report 25578467 (Version 1)
Quarter: 2025Q3

REPORT INFORMATION
  Report Type: Spontaneous
  Country: US (occurrence: US)
  Receive Date: 20250718
  Receipt Date: 20250718
  Transmission Date: 20251021
  Serious: No
  Sender: MERCK SHARP & DOHME LLC
  Company Number: US-009507513-2299372

PATIENT
  Sex: Male

DRUGS (1)
  1. KEYTRUDA [Suspect]
     Active Substance: PEMBROLIZUMAB
     Indication: Hodgkin^s disease
     Dates: start: 2022

REACTIONS (10)
  - Stomatitis [Unknown]
  - Insomnia [Unknown]
  - Muscle spasms [Unknown]
  - Visual impairment [Unknown]
  - Memory impairment [Unknown]
  - Somnolence [Unknown]
  - Temperature intolerance [Unknown]
  - Feelings of worthlessness [Unknown]
  - Fatigue [Unknown]
  - Respiration abnormal [Unknown]

NARRATIVE: CASE EVENT DATE: 20220101
